FAERS Safety Report 11526097 (Version 1)
Quarter: 2015Q3

REPORT INFORMATION
  Report Type: Spontaneous
  Country: US (occurrence: US)
  Receive Date: 20150918
  Receipt Date: 20150918
  Transmission Date: 20151125
  Serious: Yes (Death, Other)
  Sender: FDA-Public Use
  Company Number: US-TAKEDA-TPA2012A06958

PATIENT

DRUGS (11)
  1. ACTOS [Suspect]
     Active Substance: PIOGLITAZONE HYDROCHLORIDE
     Dosage: 30 MG, UNK
     Dates: start: 20070103, end: 20080310
  2. GLUCOPHAGE [Concomitant]
     Active Substance: METFORMIN HYDROCHLORIDE
     Dosage: 500 MG, UNK
     Dates: start: 2004
  3. ACTOS [Suspect]
     Active Substance: PIOGLITAZONE HYDROCHLORIDE
     Dosage: 45 MG, UNK
     Dates: start: 20080503, end: 20100331
  4. METFORMIN [Concomitant]
     Active Substance: METFORMIN HYDROCHLORIDE
     Dosage: 500-1000 MG
     Dates: start: 2002, end: 2008
  5. GLUCOTROL [Concomitant]
     Active Substance: GLIPIZIDE
     Dosage: 5 MG, UNK
     Dates: start: 2002, end: 2010
  6. GLUCOTROL [Concomitant]
     Active Substance: GLIPIZIDE
     Dosage: 10 MG, UNK
     Dates: start: 2005, end: 2008
  7. INSULIN                            /01223401/ [Concomitant]
     Indication: DIABETES MELLITUS
     Dosage: 31 G, UNK
     Dates: start: 2004, end: 2011
  8. LANTUS [Concomitant]
     Active Substance: INSULIN GLARGINE
     Dosage: 25-30 UNITS
     Dates: start: 2003, end: 2005
  9. AVANDIA [Concomitant]
     Active Substance: ROSIGLITAZONE MALEATE
     Dosage: 500 MG, UNK
     Dates: start: 2002, end: 2003
  10. ACTOS [Suspect]
     Active Substance: PIOGLITAZONE HYDROCHLORIDE
     Indication: TYPE 2 DIABETES MELLITUS
     Dosage: 15 MG, UNK
     Dates: start: 20061025, end: 20061204
  11. HUMALOG [Concomitant]
     Active Substance: INSULIN LISPRO
     Dosage: 10 ML 100 UNITS
     Dates: start: 2010, end: 2011

REACTIONS (4)
  - Lung cancer metastatic [Fatal]
  - Metastases to peripheral vascular system [Fatal]
  - Metastatic carcinoma of the bladder [Fatal]
  - Metastases to lymph nodes [Fatal]

NARRATIVE: CASE EVENT DATE: 20100426
